FAERS Safety Report 23220447 (Version 2)
Quarter: 2023Q4

REPORT INFORMATION
  Report Type: Report from Study
  Country: US (occurrence: US)
  Receive Date: 20231123
  Receipt Date: 20231204
  Transmission Date: 20240110
  Serious: No
  Sender: FDA-Public Use
  Company Number: US-SA-SAC20231116001356

PATIENT
  Age: 74 Year
  Sex: Female

DRUGS (4)
  1. DUPILUMAB [Suspect]
     Active Substance: DUPILUMAB
     Indication: Asthma
     Dosage: 300 MG, QOW
     Route: 058
     Dates: start: 2023, end: 2023
  2. DUPILUMAB [Suspect]
     Active Substance: DUPILUMAB
     Dosage: 400 MG, 1X
     Route: 058
     Dates: start: 20231023, end: 20231023
  3. DUPILUMAB [Suspect]
     Active Substance: DUPILUMAB
     Dosage: 2 DF,1X
     Route: 058
     Dates: start: 202311, end: 202311
  4. DUPILUMAB [Suspect]
     Active Substance: DUPILUMAB
     Dosage: 200 MG, QOW
     Route: 058
     Dates: start: 20231122

REACTIONS (3)
  - Weight decreased [Not Recovered/Not Resolved]
  - Paraesthesia [Recovered/Resolved]
  - Extra dose administered [Unknown]

NARRATIVE: CASE EVENT DATE: 20230101
